FAERS Safety Report 7436862-3 (Version None)
Quarter: 2011Q2

REPORT INFORMATION
  Report Type: 
  Country: None (occurrence: None)
  Receive Date: 20110426
  Receipt Date: 20101020
  Transmission Date: 20111010
  Serious: Yes (Other)
  Sender: FDA-Public Use
  Company Number: US-BAYER-201023235NA

PATIENT
  Age: 25 Year
  Sex: Female
  Weight: 56.689 kg

DRUGS (4)
  1. GAS-X [Concomitant]
  2. YAZ [Suspect]
     Indication: CONTRACEPTION
     Dosage: UNK UNK, UNK
     Route: 048
     Dates: start: 20070101, end: 20100201
  3. YAZ [Suspect]
     Indication: ACNE
  4. EMETROL [Concomitant]

REACTIONS (4)
  - MENTAL DISORDER [None]
  - GALLBLADDER DISORDER [None]
  - CHOLELITHIASIS [None]
  - CHOLECYSTITIS CHRONIC [None]
